FAERS Safety Report 14728688 (Version 4)
Quarter: 2019Q1

REPORT INFORMATION
  Report Type: Spontaneous
  Country: DE (occurrence: DE)
  Receive Date: 20180406
  Receipt Date: 20190124
  Transmission Date: 20190417
  Serious: Yes (Death, Hospitalization, Other)
  Sender: FDA-Public Use
  Company Number: DE-BAUSCH-BL-2018-008591

PATIENT
  Age: 75 Year
  Sex: Male

DRUGS (2)
  1. RIBAVIRIN. [Suspect]
     Active Substance: RIBAVIRIN
     Indication: HEPATITIS C
     Dosage: REDUCED DOSAGE
     Route: 065
     Dates: start: 201510, end: 2016
  2. LEDIPASVIR W/SOFOSBUVIR [Suspect]
     Active Substance: LEDIPASVIR\SOFOSBUVIR
     Indication: HEPATITIS C
     Route: 065
     Dates: start: 201510, end: 2016

REACTIONS (6)
  - Infection [Fatal]
  - Decreased appetite [Fatal]
  - Hepatocellular carcinoma [Fatal]
  - Glomerular filtration rate decreased [Fatal]
  - Asthenia [Fatal]
  - Anaemia [Fatal]
